APPROVED DRUG PRODUCT: FLUOXETINE HYDROCHLORIDE
Active Ingredient: FLUOXETINE HYDROCHLORIDE
Strength: EQ 10MG BASE
Dosage Form/Route: TABLET;ORAL
Application: A075810 | Product #001
Applicant: BARR LABORATORIES INC
Approved: Feb 1, 2002 | RLD: No | RS: No | Type: DISCN